FAERS Safety Report 25865752 (Version 1)
Quarter: 2025Q3

REPORT INFORMATION
  Report Type: Spontaneous
  Country: US (occurrence: US)
  Receive Date: 20250930
  Receipt Date: 20250930
  Transmission Date: 20251020
  Serious: Yes (Other)
  Sender: GUERBET
  Company Number: US-GUERBET / LLC-US-20250162

PATIENT
  Age: 13 Year
  Sex: Male

DRUGS (2)
  1. LIPIODOL [Suspect]
     Active Substance: ETHIODIZED OIL
     Indication: Therapeutic embolisation
     Dosage: ADMINISTERED LIPIODOL AND NBCA AT A 1.5:1 RATIO
     Route: 027
  2. ENBUCRILATE [Suspect]
     Active Substance: ENBUCRILATE
     Indication: Therapeutic embolisation
     Route: 027

REACTIONS (2)
  - Lymphoedema [Not Recovered/Not Resolved]
  - Product use in unapproved indication [Not Recovered/Not Resolved]
